FAERS Safety Report 9158859 (Version 2)
Quarter: 2013Q1

REPORT INFORMATION
  Report Type: Spontaneous
  Country: AU (occurrence: AU)
  Receive Date: 20130313
  Receipt Date: 20130325
  Transmission Date: 20140127
  Serious: Yes (Other)
  Sender: FDA-Public Use
  Company Number: AU-RANBAXY-2013RR-65917

PATIENT
  Age: 84 Year
  Sex: Male

DRUGS (12)
  1. SIMVASTATIN [Suspect]
     Indication: PRODUCT USED FOR UNKNOWN INDICATION
     Dosage: 40 MG/DAY
     Route: 065
  2. COLCHICINE [Interacting]
     Indication: GOUT
     Dosage: 1 MG/DAY
     Route: 065
  3. COLCHICINE [Interacting]
     Indication: GOUT
     Dosage: 0.5 MG/DAY
     Route: 065
  4. PREDNISOLONE [Concomitant]
     Indication: ASTHMA
     Dosage: 5 MG/DAY
     Route: 065
  5. FLUTICASONE/SALMETEROL [Concomitant]
     Indication: ASTHMA
     Dosage: UNK
     Route: 055
  6. EZETIMIBE [Concomitant]
     Indication: PRODUCT USED FOR UNKNOWN INDICATION
     Dosage: 20 MG/DAY
     Route: 065
  7. AMLODIPINE [Concomitant]
     Indication: PRODUCT USED FOR UNKNOWN INDICATION
     Dosage: UNK
     Route: 065
  8. IRBESARTAN [Concomitant]
     Indication: PRODUCT USED FOR UNKNOWN INDICATION
     Dosage: UNK
     Route: 065
  9. HYDROCHLOROTHIAZIDE [Concomitant]
     Indication: PRODUCT USED FOR UNKNOWN INDICATION
     Dosage: UNK
     Route: 065
  10. CLOPIDOGREL [Concomitant]
     Indication: PRODUCT USED FOR UNKNOWN INDICATION
     Dosage: UNK
     Route: 065
  11. RABEPRAZOLE [Concomitant]
     Indication: PRODUCT USED FOR UNKNOWN INDICATION
     Dosage: UNK
     Route: 065
  12. OXYCODONE [Concomitant]
     Indication: PRODUCT USED FOR UNKNOWN INDICATION
     Dosage: UNK
     Route: 065

REACTIONS (4)
  - Myopathy [Recovered/Resolved]
  - Renal impairment [Recovered/Resolved]
  - Colonic pseudo-obstruction [Recovered/Resolved]
  - Drug interaction [Recovered/Resolved]
